FAERS Safety Report 19581426 (Version 1)
Quarter: 2021Q3

REPORT INFORMATION
  Report Type: Spontaneous
  Country: US (occurrence: US)
  Receive Date: 20210719
  Receipt Date: 20210719
  Transmission Date: 20211014
  Serious: No
  Sender: FDA-Public Use
  Company Number: US-TAKEDA-2021TUS044491

PATIENT
  Age: 65 Year
  Sex: Female
  Weight: 111 kg

DRUGS (4)
  1. TRINTELLIX [Suspect]
     Active Substance: VORTIOXETINE HYDROBROMIDE
     Indication: ANXIETY
     Dosage: 2.5 MILLIGRAM
     Route: 065
  2. TRINTELLIX [Suspect]
     Active Substance: VORTIOXETINE HYDROBROMIDE
     Dosage: 2.5 MILLIGRAM, QD
     Route: 065
  3. TRINTELLIX [Suspect]
     Active Substance: VORTIOXETINE HYDROBROMIDE
     Indication: DEPRESSION
     Dosage: 5 MILLIGRAM, QD
     Route: 065
  4. TRINTELLIX [Suspect]
     Active Substance: VORTIOXETINE HYDROBROMIDE
     Dosage: 3.3 MILLIGRAM
     Route: 065

REACTIONS (8)
  - Dizziness [Unknown]
  - Retching [Unknown]
  - Salivary hypersecretion [Unknown]
  - Disorientation [Unknown]
  - Nausea [Unknown]
  - Underdose [Unknown]
  - Paraesthesia oral [Unknown]
  - Feeling jittery [Unknown]

NARRATIVE: CASE EVENT DATE: 20210713
